FAERS Safety Report 7968685-0 (Version None)
Quarter: 2011Q4

REPORT INFORMATION
  Report Type: 
  Country: None (occurrence: None)
  Receive Date: 20111209
  Receipt Date: 20111128
  Transmission Date: 20120403
  Serious: Yes (Disabling)
  Sender: FDA-Public Use
  Company Number: DE-GLAXOSMITHKLINE-D0073597A

PATIENT
  Age: 6 Year
  Sex: Female

DRUGS (2)
  1. ALBUTEROL SULFATE AUTOHALER [Concomitant]
     Route: 055
     Dates: start: 20080101
  2. FLUTICASONE PROPIONATE [Suspect]
     Indication: ASTHMA
     Route: 055
     Dates: start: 20080101

REACTIONS (1)
  - DENTAL CARIES [None]
